FAERS Safety Report 9514718 (Version 1)
Quarter: 2013Q1

REPORT INFORMATION
  Report Type: Spontaneous
  Country: US (occurrence: None)
  Receive Date: 20130305
  Receipt Date: 20130305
  Transmission Date: 20140127
  Serious: Yes (Hospitalization)
  Sender: FDA-Public Use
  Company Number: 163-21880-12112960

PATIENT
  Age: 67 Year
  Sex: Female

DRUGS (6)
  1. REVLIMID [Suspect]
     Indication: PLASMA CELL MYELOMA
     Dosage: 5 MG. EVVERY TUE, THURS, SAT FOR 28
     Dates: start: 201112
  2. PROCRIT [Concomitant]
  3. ACYCLOVIR (ACICLOVIR) (UNKNOWN) [Concomitant]
  4. GLIPIZIDE (GLIPIZIDE) [Concomitant]
  5. LIPITOR (ATORVASTATIN) (UNKNOWN) [Concomitant]
  6. SERTRALINE (SERTALINE) (UNKNOWN) [Concomitant]

REACTIONS (1)
  - Anaemia [None]
